FAERS Safety Report 16946138 (Version 1)
Quarter: 2019Q4

REPORT INFORMATION
  Report Type: Spontaneous
  Country: US (occurrence: US)
  Receive Date: 20190829
  Receipt Date: 20190829
  Transmission Date: 20200122
  Serious: Yes (Life-Threatening, Hospitalization, Disabling, Congenital Anomaly, Other)
  Sender: FDA-Public Use
  Company Number: None

PATIENT
  Sex: Female

DRUGS (3)
  1. RISPERIDONE. [Suspect]
     Active Substance: RISPERIDONE
     Indication: AMNESIA
  2. RISPERIDONE. [Suspect]
     Active Substance: RISPERIDONE
     Indication: MIGRAINE
  3. ESTER-C 24 HR IMMUNE SUPPOR [Concomitant]

REACTIONS (5)
  - Coronary artery bypass [None]
  - Dizziness [None]
  - Road traffic accident [None]
  - Vision blurred [None]
  - Mental disorder [None]
